FAERS Safety Report 7669189-5 (Version None)
Quarter: 2011Q3

REPORT INFORMATION
  Report Type: 
  Country: None (occurrence: None)
  Receive Date: 20110808
  Receipt Date: 20110728
  Transmission Date: 20111222
  Serious: Yes (Other)
  Sender: FDA-Public Use
  Company Number: PHHY2011CA68431

PATIENT
  Sex: Female

DRUGS (6)
  1. CLOZAPINE [Suspect]
     Indication: PSYCHOTIC DISORDER
     Dosage: 12.5 MG
     Route: 048
     Dates: start: 20110713
  2. CLOZAPINE [Suspect]
     Dosage: 12.5 MG, AT BEDTIME
     Route: 048
  3. WELLBUTRIN [Concomitant]
     Dosage: 250 MG, UNK
  4. SYNTHROID [Concomitant]
     Dosage: 100 UG, UNK
  5. NEXIUM [Concomitant]
     Dosage: 40 MG, BID
  6. CLOZAPINE [Suspect]
     Dosage: 25 MG
     Route: 048

REACTIONS (3)
  - SEDATION [None]
  - GRANULOCYTE COUNT DECREASED [None]
  - HEAD INJURY [None]
